FAERS Safety Report 24011442 (Version 1)
Quarter: 2024Q2

REPORT INFORMATION
  Report Type: Spontaneous
  Country: US (occurrence: US)
  Receive Date: 20240625
  Receipt Date: 20240625
  Transmission Date: 20240716
  Serious: No
  Sender: FDA-Public Use
  Company Number: US-002147023-NVSC2024US122648

PATIENT
  Sex: Male

DRUGS (1)
  1. COSENTYX [Suspect]
     Active Substance: SECUKINUMAB
     Indication: Product used for unknown indication
     Dosage: UNK (COSENTYX UNOREADY PEN (1/BOX) 300MG/2ML NOVARTIS)
     Route: 065

REACTIONS (8)
  - Injection site swelling [Unknown]
  - Injection site haemorrhage [Unknown]
  - Injection site pain [Unknown]
  - Accidental exposure to product [Unknown]
  - Product dose omission issue [Unknown]
  - Device leakage [Unknown]
  - Device malfunction [Unknown]
  - Device delivery system issue [Unknown]

NARRATIVE: CASE EVENT DATE: 20240418
